FAERS Safety Report 4592983-4 (Version None)
Quarter: 2005Q1

REPORT INFORMATION
  Report Type: 
  Country: None (occurrence: None)
  Receive Date: 20050228
  Receipt Date: 20050218
  Transmission Date: 20050727
  Serious: Yes (Other)
  Sender: FDA-Public Use
  Company Number: PHNU2005DE01002

PATIENT
  Sex: Female

DRUGS (8)
  1. CONCOR PLUS [Suspect]
     Dosage: 7.5 MG/DAY
     Dates: start: 20031015, end: 20031105
  2. ERGENYL CHRONO [Concomitant]
     Dates: start: 20031105
  3. TAVOR [Concomitant]
  4. DELIX [Concomitant]
     Dates: start: 20031108
  5. BELOC ZOK [Concomitant]
     Dates: start: 20031110
  6. KALIUM DURULES [Concomitant]
     Dosage: 1 DF, QID
     Route: 048
  7. PANTOPRAZOLE SODIUM [Concomitant]
  8. TEGRETOL [Suspect]
     Dosage: 400 MG/DAY
     Dates: start: 20031015, end: 20031105

REACTIONS (5)
  - DEHYDRATION [None]
  - DRUG INTERACTION [None]
  - GRAND MAL CONVULSION [None]
  - HYPOKALAEMIA [None]
  - HYPONATRAEMIA [None]
